FAERS Safety Report 8430713-6 (Version None)
Quarter: 2012Q2

REPORT INFORMATION
  Report Type: 
  Country: None (occurrence: None)
  Receive Date: 20120323
  Receipt Date: 20110719
  Transmission Date: 20120825
  Serious: Yes (Life-Threatening, Hospitalization, Other)
  Sender: FDA-Public Use
  Company Number: 163-21880-11042903

PATIENT
  Age: 55 Year
  Sex: Female

DRUGS (10)
  1. ASPIRIN [Concomitant]
  2. NEURONTIN [Concomitant]
  3. REVLIMID [Suspect]
     Indication: MULTIPLE MYELOMA
     Dosage: SEE IMAGE
     Route: 048
     Dates: start: 20110201, end: 20110401
  4. REVLIMID [Suspect]
     Indication: MULTIPLE MYELOMA
     Dosage: SEE IMAGE
     Route: 048
     Dates: start: 20110601
  5. REVLIMID [Suspect]
     Indication: MULTIPLE MYELOMA
     Dosage: SEE IMAGE
     Route: 048
     Dates: start: 20100707
  6. ACIPHEX (RABEPRAZOLE SODIUM) (UNKNOWN) [Concomitant]
  7. ACYCLOVIR (ACICLOVIR) (UNKNOWN) [Concomitant]
  8. LOW MOLECULAR WEIGHT HEPARIN (HEPARIN) (UNKOWN) [Concomitant]
  9. COUMADIN [Concomitant]
  10. DEXAMETHASONE [Concomitant]

REACTIONS (3)
  - PAIN IN EXTREMITY [None]
  - OEDEMA PERIPHERAL [None]
  - DEEP VEIN THROMBOSIS [None]
